FAERS Safety Report 24309950 (Version 1)
Quarter: 2024Q3

REPORT INFORMATION
  Report Type: Report from Study
  Country: US (occurrence: None)
  Receive Date: 20240912
  Receipt Date: 20240912
  Transmission Date: 20241016
  Serious: Yes (Other)
  Sender: ASTRAZENECA
  Company Number: 2024A202679

PATIENT
  Sex: Female

DRUGS (1)
  1. BREZTRI [Suspect]
     Active Substance: BUDESONIDE\FORMOTEROL\GLYCOPYRROLATE
     Indication: Product used for unknown indication
     Dosage: 2 PUFFS BY MOUTH TWICE DAILY
     Route: 055

REACTIONS (5)
  - Aphasia [Unknown]
  - Aphonia [Unknown]
  - Cerebrovascular accident [Unknown]
  - Drug hypersensitivity [Unknown]
  - Dyspnoea [Unknown]
